FAERS Safety Report 5939370-1 (Version None)
Quarter: 2008Q4

REPORT INFORMATION
  Report Type: 
  Country: None (occurrence: None)
  Receive Date: 20081103
  Receipt Date: 20081027
  Transmission Date: 20090506
  Serious: Yes (Life-Threatening, Other)
  Sender: FDA-Public Use
  Company Number: US-GENENTECH-268158

PATIENT
  Sex: Female
  Weight: 52.608 kg

DRUGS (9)
  1. RITUXAN [Suspect]
     Indication: B-CELL LYMPHOMA
     Dosage: 500 MG, Q3W
     Route: 042
     Dates: start: 20080624
  2. RITUXAN [Suspect]
     Dosage: 500 MG, 1/MONTH
     Dates: start: 20080905
  3. FLUDARABINE [Concomitant]
     Indication: B-CELL LYMPHOMA
  4. CYTOXAN [Concomitant]
     Indication: B-CELL LYMPHOMA
  5. TYLENOL [Concomitant]
     Indication: PREMEDICATION
  6. COMPAZINE [Concomitant]
     Indication: PREMEDICATION
  7. ZOFRAN [Concomitant]
     Indication: PREMEDICATION
  8. BENADRYL [Concomitant]
     Indication: DRUG USE FOR UNKNOWN INDICATION
  9. DECADRON [Concomitant]
     Indication: PREMEDICATION

REACTIONS (3)
  - CONVULSION [None]
  - NEOPLASM [None]
  - PYREXIA [None]
